FAERS Safety Report 7509659-3 (Version None)
Quarter: 2011Q2

REPORT INFORMATION
  Report Type: 
  Country: None (occurrence: None)
  Receive Date: 20110527
  Receipt Date: 20110513
  Transmission Date: 20111010
  Serious: Yes (Hospitalization, Other)
  Sender: FDA-Public Use
  Company Number: CA-JNJFOC-20090604559

PATIENT
  Sex: Female
  Weight: 72 kg

DRUGS (7)
  1. ACETAMINOPHEN [Concomitant]
     Indication: PREMEDICATION
     Route: 048
  2. REMICADE [Suspect]
     Dosage: FROM 1415 UNTIL 1620
     Route: 042
     Dates: start: 20090416, end: 20110513
  3. BENADRYL [Concomitant]
     Indication: PREMEDICATION
     Route: 048
  4. REMICADE [Suspect]
     Indication: CROHN'S DISEASE
     Dosage: A TOTAL OF 10 DOSES
     Route: 042
     Dates: start: 20071105
  5. SOLU-CORTEF [Concomitant]
     Indication: PREMEDICATION
     Route: 042
  6. FOSAMAX [Concomitant]
  7. PREDNISONE [Concomitant]

REACTIONS (2)
  - PROCEDURAL SITE REACTION [None]
  - ABDOMINAL HERNIA [None]
